FAERS Safety Report 16793436 (Version 1)
Quarter: 2019Q3

REPORT INFORMATION
  Report Type: Report from Study
  Country: US (occurrence: US)
  Receive Date: 20190911
  Receipt Date: 20190911
  Transmission Date: 20191005
  Serious: Yes (Other)
  Sender: FDA-Public Use
  Company Number: US-ROCHE-2402339

PATIENT

DRUGS (2)
  1. FENTANYL. [Suspect]
     Active Substance: FENTANYL
     Indication: ORAL SURGERY
     Route: 042
  2. DIAZEPAM. [Suspect]
     Active Substance: DIAZEPAM
     Indication: ORAL SURGERY
     Route: 042

REACTIONS (1)
  - Bradycardia [Recovered/Resolved]
